FAERS Safety Report 18505988 (Version 1)
Quarter: 2020Q4

REPORT INFORMATION
  Report Type: Report from Study
  Country: DE (occurrence: AU)
  Receive Date: 20201116
  Receipt Date: 20201116
  Transmission Date: 20210114
  Serious: Yes (Hospitalization, Other)
  Sender: FDA-Public Use
  Company Number: AU-ENDO PHARMACEUTICALS INC-2016-005718

PATIENT
  Age: 66 Year
  Sex: Male

DRUGS (1)
  1. AVEED [Suspect]
     Active Substance: TESTOSTERONE UNDECANOATE
     Indication: DIABETES PROPHYLAXIS
     Dosage: 1000 MG, UNKNOWN
     Route: 030
     Dates: end: 20160412

REACTIONS (1)
  - Transurethral prostatectomy [Not Recovered/Not Resolved]

NARRATIVE: CASE EVENT DATE: 20160808
